FAERS Safety Report 9300407 (Version 1)
Quarter: 2013Q2

REPORT INFORMATION
  Report Type: Spontaneous
  Country: US (occurrence: US)
  Receive Date: 20130521
  Receipt Date: 20130521
  Transmission Date: 20140414
  Serious: No
  Sender: FDA-Public Use
  Company Number: US-VERTEX PHARMACEUTICALS INC-2012-022510

PATIENT
  Sex: Male
  Weight: 100 kg

DRUGS (3)
  1. INCIVEK [Suspect]
     Indication: HEPATITIS C
     Dosage: 750 MG, TID
     Route: 048
     Dates: start: 20120818
  2. PEGASYS [Suspect]
     Indication: HEPATITIS C
     Dosage: 180 ?G, QW
     Route: 058
     Dates: start: 20120817
  3. RIBAVIRIN [Suspect]
     Indication: HEPATITIS C
     Dosage: UNK UNK, QD
     Route: 048
     Dates: start: 20120818

REACTIONS (2)
  - Fatigue [Not Recovered/Not Resolved]
  - Pruritus [Not Recovered/Not Resolved]
